FAERS Safety Report 6403236-3 (Version None)
Quarter: 2009Q4

REPORT INFORMATION
  Report Type: 
  Country: None (occurrence: None)
  Receive Date: 20091016
  Receipt Date: 20091008
  Transmission Date: 20100525
  Serious: Yes (Hospitalization)
  Sender: FDA-Public Use
  Company Number: US-AMGEN-QUU366742

PATIENT
  Sex: Female
  Weight: 86.3 kg

DRUGS (12)
  1. ENBREL [Suspect]
     Indication: PSORIASIS
     Route: 058
     Dates: start: 20060601
  2. ENBREL [Suspect]
     Indication: RHEUMATOID ARTHRITIS
  3. DIOVAN HCT [Concomitant]
     Dates: start: 20090101
  4. CLOBETASOL PROPIONATE [Concomitant]
     Dates: start: 20081001
  5. LEVOTHYROXINE SODIUM [Concomitant]
     Dates: start: 20080601
  6. LUMIGAN [Concomitant]
     Dates: start: 20080101
  7. NEXIUM [Concomitant]
     Dates: start: 20080101
  8. ZOCOR [Concomitant]
     Dates: start: 20080101
  9. VICODIN [Concomitant]
     Dates: start: 20080101
  10. TIMOPTIC [Concomitant]
     Dates: start: 20080101
  11. ASPIRIN [Concomitant]
     Dates: start: 20080101
  12. CELEBREX [Concomitant]
     Dates: start: 20080101

REACTIONS (1)
  - OSTEOARTHRITIS [None]
